FAERS Safety Report 11347458 (Version 1)
Quarter: 2015Q3

REPORT INFORMATION
  Report Type: Spontaneous
  Country: US (occurrence: US)
  Receive Date: 20150803
  Receipt Date: 20150803
  Transmission Date: 20151125
  Serious: No
  Sender: FDA-Public Use
  Company Number: US-ELI_LILLY_AND_COMPANY-US201107004392

PATIENT
  Sex: Male

DRUGS (3)
  1. ZYPREXA [Suspect]
     Active Substance: OLANZAPINE
     Indication: BIPOLAR DISORDER
     Dosage: 7.5 MG, UNK
  2. PROZAC [Concomitant]
     Active Substance: FLUOXETINE HYDROCHLORIDE
  3. ABILIFY [Concomitant]
     Active Substance: ARIPIPRAZOLE

REACTIONS (3)
  - Disturbance in attention [Unknown]
  - Penis disorder [Unknown]
  - General physical health deterioration [Unknown]
